FAERS Safety Report 5570508-4 (Version None)
Quarter: 2007Q4

REPORT INFORMATION
  Report Type: 
  Country: None (occurrence: None)
  Receive Date: 20071221
  Receipt Date: 20071116
  Transmission Date: 20080405
  Serious: No
  Sender: FDA-Public Use
  Company Number: US-BRISTOL-MYERS SQUIBB COMPANY-13986229

PATIENT
  Age: 69 Year
  Sex: Female

DRUGS (3)
  1. ORENCIA [Suspect]
     Indication: RHEUMATOID ARTHRITIS
     Route: 042
     Dates: start: 20071101
  2. TYLENOL [Concomitant]
  3. CLARITIN [Concomitant]

REACTIONS (2)
  - EYE PRURITUS [None]
  - THROAT IRRITATION [None]
